FAERS Safety Report 4454777-X (Version None)
Quarter: 2004Q3

REPORT INFORMATION
  Report Type: 
  Country: None (occurrence: None)
  Receive Date: 20040921
  Receipt Date: 20040716
  Transmission Date: 20050211
  Serious: Yes (Death, Hospitalization, Other)
  Sender: FDA-Public Use
  Company Number: PHHO2004JP10185

PATIENT
  Age: 61 Year
  Sex: Male
  Weight: 56 kg

DRUGS (7)
  1. SIMULECT [Suspect]
     Indication: RENAL TRANSPLANT
     Dosage: 20 MG, DAY 0
     Route: 042
     Dates: start: 20030630, end: 20030630
  2. SIMULECT [Suspect]
     Dosage: 20 MG, DAY 4
     Route: 042
     Dates: start: 20030704, end: 20030704
  3. SANDIMMUNE [Suspect]
     Indication: RENAL TRANSPLANT
     Dosage: 150 MG/DAILY
     Route: 004
     Dates: start: 20030630, end: 20030704
  4. SANDIMMUNE [Suspect]
     Dosage: 50 MG/DAILY
     Route: 042
     Dates: start: 20030928
  5. NEORAL [Suspect]
     Indication: RENAL TRANSPLANT
     Route: 048
     Dates: start: 20030705, end: 20030927
  6. CELLCEPT [Suspect]
     Indication: RENAL TRANSPLANT
     Dosage: 2 MG/DAILY
     Route: 048
     Dates: start: 20030628, end: 20030905
  7. SOLU-MEDROL [Concomitant]
     Indication: RENAL TRANSPLANT
     Dates: start: 20030630, end: 20030927

REACTIONS (8)
  - ANAL FISSURE [None]
  - CYTOMEGALOVIRUS INFECTION [None]
  - DEPRESSION [None]
  - EATING DISORDER [None]
  - GASTROINTESTINAL PAIN [None]
  - INTESTINAL PERFORATION [None]
  - PERITONITIS [None]
  - SEPSIS [None]
